FAERS Safety Report 18773950 (Version 2)
Quarter: 2021Q1

REPORT INFORMATION
  Report Type: Spontaneous
  Country: CA (occurrence: CA)
  Receive Date: 20210122
  Receipt Date: 20210224
  Transmission Date: 20210419
  Serious: Yes (Other)
  Sender: FDA-Public Use
  Company Number: CA-SA-2021SA016130

PATIENT
  Age: 52 Year
  Sex: Female

DRUGS (18)
  1. FOLIC ACID. [Concomitant]
     Active Substance: FOLIC ACID
  2. LASIX [Concomitant]
     Active Substance: FUROSEMIDE
  3. ACTEMRA [Suspect]
     Active Substance: TOCILIZUMAB
     Dosage: 680 MG, Q4W
     Route: 042
  4. NAPROXEN. [Suspect]
     Active Substance: NAPROXEN
  5. FERROUS GLUCONATE [Concomitant]
     Active Substance: FERROUS GLUCONATE
  6. NAPROSYN [Concomitant]
     Active Substance: NAPROXEN
  7. METHOTREXATE. [Suspect]
     Active Substance: METHOTREXATE
  8. DIPHENHYDRAMINE HYDROCHLORIDE. [Concomitant]
     Active Substance: DIPHENHYDRAMINE HYDROCHLORIDE
  9. METHYLPREDNISOLONE. [Concomitant]
     Active Substance: METHYLPREDNISOLONE
  10. PLAQUENIL [Suspect]
     Active Substance: HYDROXYCHLOROQUINE SULFATE
  11. ETANERCEPT [Suspect]
     Active Substance: ETANERCEPT
  12. OXYCODONE HYDROCHLORIDE. [Concomitant]
     Active Substance: OXYCODONE HYDROCHLORIDE
  13. LEFLUNOMIDE. [Suspect]
     Active Substance: LEFLUNOMIDE
  14. ACETAMINOPHEN. [Concomitant]
     Active Substance: ACETAMINOPHEN
  15. INFLIXIMAB [Suspect]
     Active Substance: INFLIXIMAB
     Indication: PRODUCT USED FOR UNKNOWN INDICATION
     Dosage: UNKNOWN
  16. ACTEMRA [Suspect]
     Active Substance: TOCILIZUMAB
     Indication: RHEUMATOID ARTHRITIS
     Dosage: 624 MG, Q4W
     Route: 042
  17. ANAKINRA [Suspect]
     Active Substance: ANAKINRA
  18. RITUXAN [Suspect]
     Active Substance: RITUXIMAB

REACTIONS (31)
  - Blood pressure fluctuation [Not Recovered/Not Resolved]
  - Impaired healing [Not Recovered/Not Resolved]
  - Infusion related reaction [Not Recovered/Not Resolved]
  - Smear cervix abnormal [Not Recovered/Not Resolved]
  - Herpes zoster [Not Recovered/Not Resolved]
  - Medication error [Unknown]
  - Blood pressure increased [Not Recovered/Not Resolved]
  - Joint swelling [Not Recovered/Not Resolved]
  - Toothache [Not Recovered/Not Resolved]
  - Localised infection [Not Recovered/Not Resolved]
  - Suicidal ideation [Not Recovered/Not Resolved]
  - Drug ineffective [Unknown]
  - Depression [Not Recovered/Not Resolved]
  - Pain [Not Recovered/Not Resolved]
  - Rheumatoid arthritis [Not Recovered/Not Resolved]
  - Skin fissures [Not Recovered/Not Resolved]
  - Nasopharyngitis [Not Recovered/Not Resolved]
  - Peripheral swelling [Not Recovered/Not Resolved]
  - Malaise [Not Recovered/Not Resolved]
  - Ill-defined disorder [Not Recovered/Not Resolved]
  - Therapeutic product effect decreased [Unknown]
  - Therapeutic response decreased [Unknown]
  - Flushing [Not Recovered/Not Resolved]
  - Tooth disorder [Not Recovered/Not Resolved]
  - Rash [Not Recovered/Not Resolved]
  - Abdominal pain [Not Recovered/Not Resolved]
  - Endodontic procedure [Not Recovered/Not Resolved]
  - Weight increased [Not Recovered/Not Resolved]
  - Heart rate decreased [Not Recovered/Not Resolved]
  - Drug intolerance [Unknown]
  - Therapy non-responder [Unknown]
